FAERS Safety Report 20707084 (Version 1)
Quarter: 2022Q2

REPORT INFORMATION
  Report Type: Spontaneous
  Country: US (occurrence: US)
  Receive Date: 20220413
  Receipt Date: 20220413
  Transmission Date: 20220721
  Serious: No
  Sender: FDA-Public Use
  Company Number: US-FOUNDATIONCONSUMERHC-2022-US-003850

PATIENT
  Age: 37 Year
  Sex: Female
  Weight: 154.22 kg

DRUGS (2)
  1. PLAN B ONE-STEP [Suspect]
     Active Substance: LEVONORGESTREL
     Indication: Post coital contraception
     Dosage: PLAN B 1.5MG ON 16-FEB AND TAKE ACTION 1.5MG ON 17-FEB
     Route: 048
     Dates: start: 20220216, end: 20220217
  2. COFFEE [Concomitant]
     Active Substance: ARABICA COFFEE BEAN\COFFEE BEAN
     Dates: start: 20220216, end: 20220216

REACTIONS (5)
  - Intentional product misuse [Recovered/Resolved]
  - Feeling jittery [Recovered/Resolved]
  - Feeling hot [Recovered/Resolved]
  - Dizziness [Recovered/Resolved]
  - Incorrect dosage administered [Recovered/Resolved]

NARRATIVE: CASE EVENT DATE: 20220216
